FAERS Safety Report 13579144 (Version 1)
Quarter: 2017Q2

REPORT INFORMATION
  Report Type: Spontaneous
  Country: US (occurrence: US)
  Receive Date: 20170524
  Receipt Date: 20170524
  Transmission Date: 20170830
  Serious: No
  Sender: FDA-Public Use
  Company Number: None

PATIENT
  Sex: Male

DRUGS (1)
  1. TETRABENAZINE 12.5MG SUN PHARMACEUTICAL INDUSTRIES, INC [Suspect]
     Active Substance: TETRABENAZINE
     Indication: MUSCLE SPASMS
     Dosage: 12.5MG TWICE DAILY G-TUBE
     Dates: start: 20160621

REACTIONS (1)
  - Hiccups [None]
